FAERS Safety Report 18980587 (Version 1)
Quarter: 2021Q1

REPORT INFORMATION
  Report Type: Spontaneous
  Country: US (occurrence: US)
  Receive Date: 20210307
  Receipt Date: 20210307
  Transmission Date: 20210420
  Serious: Yes (Hospitalization)
  Sender: FDA-Public Use
  Company Number: None

PATIENT
  Sex: Female
  Weight: 78.3 kg

DRUGS (16)
  1. BRAFTOVI [Suspect]
     Active Substance: ENCORAFENIB
     Indication: MALIGNANT MELANOMA
     Dates: start: 20210101
  2. OXYCODONE [Concomitant]
     Active Substance: OXYCODONE
  3. VAGISIL ANTI ITCH ORIGINAL STRENGTH [Concomitant]
     Active Substance: BENZOCAINE\RESORCINOL
  4. ALBUTEROL. [Concomitant]
     Active Substance: ALBUTEROL
  5. MEKTOVI [Suspect]
     Active Substance: BINIMETINIB
     Indication: MALIGNANT MELANOMA
     Dates: start: 20210101
  6. CALCIUM [Concomitant]
     Active Substance: CALCIUM
  7. VITAMIN D3 [Concomitant]
     Active Substance: CHOLECALCIFEROL
  8. XGEVA [Concomitant]
     Active Substance: DENOSUMAB
  9. ACETAMINOPHEN. [Concomitant]
     Active Substance: ACETAMINOPHEN
  10. IBUPROFEN. [Concomitant]
     Active Substance: IBUPROFEN
  11. SENNA [Concomitant]
     Active Substance: SENNA LEAF\SENNOSIDES\SENNOSIDES A AND B
  12. ADVIL [Concomitant]
     Active Substance: IBUPROFEN
  13. ONDANSETRON [Concomitant]
     Active Substance: ONDANSETRON
  14. CEFDINIR. [Concomitant]
     Active Substance: CEFDINIR
  15. CLARITIN [Concomitant]
     Active Substance: LORATADINE
  16. OMNIVEX [Concomitant]

REACTIONS (1)
  - Hip surgery [None]
